FAERS Safety Report 10547235 (Version 1)
Quarter: 2014Q4

REPORT INFORMATION
  Report Type: Spontaneous
  Country: US (occurrence: US)
  Receive Date: 20141027
  Receipt Date: 20141027
  Transmission Date: 20150529
  Serious: Yes (Other)
  Sender: FDA-Public Use
  Company Number: US-BRISTOL-MYERS SQUIBB COMPANY-21512504

PATIENT
  Age: 80 Year
  Sex: Male

DRUGS (2)
  1. CRESTOR [Concomitant]
     Active Substance: ROSUVASTATIN CALCIUM
  2. BYETTA [Suspect]
     Active Substance: EXENATIDE
     Dosage: FREQUENCY :1 OR 2 INJECTIONS/DAY?ONGOING
     Route: 058
     Dates: start: 2009

REACTIONS (1)
  - Dementia Alzheimer^s type [Not Recovered/Not Resolved]
